FAERS Safety Report 14411282 (Version 1)
Quarter: 2018Q1

REPORT INFORMATION
  Report Type: Spontaneous
  Country: DE (occurrence: DE)
  Receive Date: 20180119
  Receipt Date: 20180119
  Transmission Date: 20180509
  Serious: Yes (Congenital Anomaly, Other)
  Sender: FDA-Public Use
  Company Number: DE-PFIZER INC-2013343665

PATIENT

DRUGS (6)
  1. ROCURONIUM [Suspect]
     Active Substance: ROCURONIUM BROMIDE
     Indication: LAPAROSCOPY
     Dosage: SUSPECTED ECTOPIC PREGNANCY; CYST
     Route: 064
     Dates: start: 20080829, end: 20080829
  2. PROPOFOL. [Suspect]
     Active Substance: PROPOFOL
     Indication: LAPAROSCOPY
     Dosage: SUSPECTED ECTOPIC PREGNANCY; CYST
     Route: 064
     Dates: start: 20080829, end: 20080829
  3. METAMIZOLE [Suspect]
     Active Substance: METAMIZOLE
     Indication: LAPAROSCOPY
     Dosage: UNK
     Route: 064
     Dates: start: 20080829, end: 20080829
  4. SALBUTAMOL [Concomitant]
     Active Substance: ALBUTEROL
     Indication: ASTHMA
     Dosage: UNK
     Route: 064
     Dates: start: 20080721, end: 20081020
  5. FENTANYL. [Suspect]
     Active Substance: FENTANYL
     Indication: LAPAROSCOPY
     Dosage: SUSPECTED ECTOPIC PREGNANCY; CYST
     Route: 064
     Dates: start: 20080829, end: 20080829
  6. AKRINOR [Suspect]
     Active Substance: CAFEDRINE HYDROCHLORIDE\THEODRENALINE
     Indication: LAPAROSCOPY
     Dosage: SUSPECTED ECTOPIC PREGNANCY; CYST
     Route: 064
     Dates: start: 20080829, end: 20080829

REACTIONS (2)
  - Maternal exposure during pregnancy [Unknown]
  - Anencephaly [Unknown]
